FAERS Safety Report 18718293 (Version 1)
Quarter: 2021Q1

REPORT INFORMATION
  Report Type: Spontaneous
  Country: US (occurrence: US)
  Receive Date: 20210108
  Receipt Date: 20210108
  Transmission Date: 20210419
  Serious: No
  Sender: FDA-Public Use
  Company Number: US-AMNEAL PHARMACEUTICALS-2020-AMRX-01073

PATIENT
  Age: 30 Year
  Sex: Female
  Weight: 83 kg

DRUGS (8)
  1. CALCIUM + MAGNESIUM + ZINK [Concomitant]
     Indication: NUTRITIONAL SUPPLEMENTATION
     Dosage: 1 DOSAGE FORM, 1 /DAY
     Route: 048
     Dates: start: 20191101
  2. ELAGOLIX [Suspect]
     Active Substance: ELAGOLIX
     Indication: ENDOMETRIOSIS
     Dosage: 1 DOSAGE FORM, 2 /DAY
     Route: 048
     Dates: start: 20190517, end: 20191101
  3. TYLENOL A [Concomitant]
     Active Substance: ACETAMINOPHEN
     Indication: HEADACHE
     Dosage: 325 MILLIGRAM, AS NEEDED
     Route: 048
     Dates: start: 2014
  4. IRON [Concomitant]
     Active Substance: IRON
     Indication: FATIGUE
     Dosage: 65 MILLIGRAM, AS NEEDED
     Route: 048
     Dates: start: 20180712
  5. BIOTIN [Concomitant]
     Active Substance: BIOTIN
     Indication: SUPPLEMENTATION THERAPY
     Dosage: 1000 MICROGRMA, 1/DAY
     Route: 048
     Dates: start: 201710
  6. ERGOCALCIFEROL. [Concomitant]
     Active Substance: ERGOCALCIFEROL
     Indication: NUTRITIONAL SUPPLEMENTATION
     Dosage: 1 DOSAGE FORM, 1 /DAY
     Route: 048
     Dates: start: 20190830
  7. ACTIVELLA [Suspect]
     Active Substance: ESTRADIOL\NORETHINDRONE ACETATE
     Indication: ENDOMETRIOSIS
     Dosage: 1 DOSAGE FORM, 1 /DAY
     Route: 048
     Dates: start: 20190517, end: 20191101
  8. IBUPROFEN. [Concomitant]
     Active Substance: IBUPROFEN
     Indication: ARTHRALGIA
     Dosage: 800 MG,AS REQUIRED
     Route: 048
     Dates: start: 2014

REACTIONS (1)
  - Dyspnoea [Not Recovered/Not Resolved]

NARRATIVE: CASE EVENT DATE: 20200325
